FAERS Safety Report 7573812-3 (Version None)
Quarter: 2011Q2

REPORT INFORMATION
  Report Type: 
  Country: None (occurrence: None)
  Receive Date: 20110621
  Receipt Date: 20110607
  Transmission Date: 20111010
  Serious: Yes (Death, Hospitalization)
  Sender: FDA-Public Use
  Company Number: 2008002514

PATIENT
  Age: 59 Year
  Sex: Female
  Weight: 50 kg

DRUGS (2)
  1. ERLOTINIB HYDROCHLORIDE [Suspect]
     Indication: BILE DUCT CANCER
     Dosage: 150 MG, UID/QD, ORAL
     Route: 048
     Dates: start: 20080225, end: 20080408
  2. BEVACIZUMAB (BEVACIZUMAB) [Suspect]
     Indication: BILE DUCT CANCER
     Dosage: 5 MG/KG, IV, NOS
     Route: 042
     Dates: start: 20080225

REACTIONS (17)
  - NAUSEA [None]
  - BLOOD ALKALINE PHOSPHATASE INCREASED [None]
  - ABDOMINAL PAIN UPPER [None]
  - JAUNDICE [None]
  - ANAEMIA [None]
  - NEOPLASM PROGRESSION [None]
  - ALANINE AMINOTRANSFERASE INCREASED [None]
  - DEHYDRATION [None]
  - GAMMA-GLUTAMYLTRANSFERASE INCREASED [None]
  - HYPOALBUMINAEMIA [None]
  - BILIARY TRACT DISORDER [None]
  - CONFUSIONAL STATE [None]
  - WEIGHT DECREASED [None]
  - BLOOD BILIRUBIN INCREASED [None]
  - FATIGUE [None]
  - DEVICE KINK [None]
  - BILIARY CANCER METASTATIC [None]
